FAERS Safety Report 9935034 (Version 2)
Quarter: 2014Q1

REPORT INFORMATION
  Report Type: Spontaneous
  Country: JP (occurrence: JP)
  Receive Date: 20140228
  Receipt Date: 20140318
  Transmission Date: 20141002
  Serious: Yes (Hospitalization)
  Sender: FDA-Public Use
  Company Number: JP-PFIZER INC-2014055611

PATIENT
  Age: 66 Year
  Sex: Male

DRUGS (10)
  1. MEDROL [Suspect]
     Indication: SUDDEN HEARING LOSS
     Dosage: 36 MG, DAILY
     Route: 048
  2. MEDROL [Suspect]
     Dosage: 24 MG, DAILY
     Route: 048
  3. WARFARIN [Concomitant]
     Dosage: UNK
  4. IMIDAPRIL [Concomitant]
     Dosage: UNK
  5. AMLODIPINE [Concomitant]
     Dosage: UNK
  6. DILTIAZEM [Concomitant]
     Dosage: UNK
  7. METHYCOBAL [Concomitant]
     Dosage: 500 UG, UNK
  8. PASETOCIN [Concomitant]
     Dosage: UNK
     Route: 048
  9. CARBOCISTEINE [Concomitant]
     Dosage: UNK
  10. GASTER D [Concomitant]
     Dosage: 20 MG, UNK

REACTIONS (3)
  - Off label use [Unknown]
  - Liver disorder [Recovered/Resolved]
  - Pancreatic disorder [Recovered/Resolved]
